FAERS Safety Report 5259978-9 (Version None)
Quarter: 2007Q1

REPORT INFORMATION
  Report Type: 
  Country: None (occurrence: None)
  Receive Date: 20070309
  Receipt Date: 20060119
  Transmission Date: 20070707
  Serious: No
  Sender: FDA-Public Use
  Company Number: US-GLAXOSMITHKLINE-A0589368A

PATIENT
  Age: 49 Year
  Sex: Male

DRUGS (1)
  1. NICORETTE [Suspect]
     Dosage: 4MG AS DIRECTED
     Route: 002

REACTIONS (1)
  - THROAT IRRITATION [None]
